FAERS Safety Report 7907498-2 (Version None)
Quarter: 2011Q4

REPORT INFORMATION
  Report Type: 
  Country: None (occurrence: None)
  Receive Date: 20111109
  Receipt Date: 20111109
  Transmission Date: 20120403
  Serious: No
  Sender: FDA-Public Use
  Company Number: None

PATIENT
  Sex: Female
  Weight: 70.4 kg

DRUGS (10)
  1. PROTONIX [Concomitant]
  2. SUNITINIB MALATE [Suspect]
     Dosage: 650 MG
     Dates: end: 20111020
  3. COLACE [Concomitant]
  4. HYDROCHLOROTHIAZIDE [Concomitant]
  5. OXYCODONE HCL [Concomitant]
  6. LISINOPRIL [Concomitant]
  7. GABAPENTIN [Concomitant]
  8. LOPERAMIDE HCL [Concomitant]
  9. NORVASC [Concomitant]
  10. SYNTHROID [Concomitant]

REACTIONS (2)
  - CONDITION AGGRAVATED [None]
  - HYPERTENSION [None]
